FAERS Safety Report 9442987 (Version 1)
Quarter: 2013Q3

REPORT INFORMATION
  Report Type: Report from Study
  Country: US (occurrence: US)
  Receive Date: 20130806
  Receipt Date: 20130806
  Transmission Date: 20140515
  Serious: Yes (Hospitalization)
  Sender: FDA-Public Use
  Company Number: US-ACTELION-A-US2013-86522

PATIENT
  Age: 53 Year
  Sex: Female

DRUGS (2)
  1. VELETRI [Suspect]
     Indication: PULMONARY ARTERIAL HYPERTENSION
     Dosage: 35 UNK, UNK
     Route: 042
     Dates: start: 20120824, end: 20130723
  2. ADCIRCA [Concomitant]

REACTIONS (1)
  - Colitis [Recovered/Resolved]
